FAERS Safety Report 9350679 (Version 6)
Quarter: 2013Q4

REPORT INFORMATION
  Report Type: Report from Study
  Country: CA (occurrence: CA)
  Receive Date: 20130617
  Receipt Date: 20131010
  Transmission Date: 20140711
  Serious: Yes (Life-Threatening, Hospitalization)
  Sender: FDA-Public Use
  Company Number: PHHY2013CA057702

PATIENT
  Age: 36 Year
  Sex: Male

DRUGS (8)
  1. CLOZARIL [Suspect]
     Indication: SCHIZOPHRENIA
     Dosage: 375 MG
     Route: 048
     Dates: start: 20010711
  2. CLOZARIL [Suspect]
     Dosage: 350 MG
     Route: 048
     Dates: end: 20130605
  3. CLOZARIL [Suspect]
     Dosage: 25 MG, (TITRATED TO 300 MG)
  4. MOXIFLOXACIN [Concomitant]
     Dosage: 400 MG, QD
     Dates: start: 20130604
  5. AMOXICILINA + ACIDO CLAVULONICO [Concomitant]
     Dosage: 1 DF, BID
     Dates: start: 20130531
  6. CLOMIPRAMINE [Concomitant]
     Dosage: 50 MG, QD (AT 8:00 AM)
  7. TOPIRAMATE [Concomitant]
     Dosage: 125 MG, QD
  8. COGENTIN [Concomitant]
     Dosage: 2 MG

REACTIONS (9)
  - Pneumonia viral [Recovering/Resolving]
  - Haemoglobin decreased [Recovering/Resolving]
  - Neuroleptic malignant syndrome [Unknown]
  - Renal failure [Recovering/Resolving]
  - Bacterial infection [Unknown]
  - Respiratory tract infection [Unknown]
  - Body temperature increased [Unknown]
  - Nasopharyngitis [Recovering/Resolving]
  - Sepsis [Unknown]
